FAERS Safety Report 15615533 (Version 2)
Quarter: 2019Q2

REPORT INFORMATION
  Report Type: Report from Study
  Country: CA (occurrence: CA)
  Receive Date: 20181114
  Receipt Date: 20190424
  Transmission Date: 20190711
  Serious: Yes (Hospitalization, Other)
  Sender: FDA-Public Use
  Company Number: CA-TOLMAR, INC.-2018CA011043

PATIENT

DRUGS (2)
  1. ELIGARD [Suspect]
     Active Substance: LEUPROLIDE ACETATE
     Dosage: 45 MG, UNK
     Route: 058
     Dates: start: 20180513, end: 20181102
  2. ELIGARD [Suspect]
     Active Substance: LEUPROLIDE ACETATE
     Indication: PROSTATE CANCER
     Dosage: 45 MG, UNK
     Route: 058
     Dates: start: 201711

REACTIONS (4)
  - General physical health deterioration [Recovering/Resolving]
  - Terminal state [Unknown]
  - Confusional state [Recovering/Resolving]
  - Family stress [Recovering/Resolving]

NARRATIVE: CASE EVENT DATE: 20181101
